FAERS Safety Report 20144343 (Version 2)
Quarter: 2021Q4

REPORT INFORMATION
  Report Type: Spontaneous
  Country: US (occurrence: US)
  Receive Date: 20211203
  Receipt Date: 20211206
  Transmission Date: 20220303
  Serious: No
  Sender: FDA-Public Use
  Company Number: US-BAYER-2021A259328

PATIENT
  Age: 54 Year
  Sex: Male
  Weight: 126.1 kg

DRUGS (7)
  1. MIRALAX [Suspect]
     Active Substance: POLYETHYLENE GLYCOL 3350
     Indication: Gastrointestinal disorder
  2. MIRALAX [Suspect]
     Active Substance: POLYETHYLENE GLYCOL 3350
     Indication: Constipation
  3. PROCARDIA [Concomitant]
     Active Substance: NIFEDIPINE
     Indication: Blood pressure abnormal
     Dosage: 60 MG, BID
  4. PROCARDIA [Concomitant]
     Active Substance: NIFEDIPINE
     Indication: Blood pressure abnormal
     Dosage: 60 MG, QD
  5. AMLODIPINE [Concomitant]
     Active Substance: AMLODIPINE BESYLATE
  6. LOSARTAN [Concomitant]
     Active Substance: LOSARTAN
     Dosage: 100 MG, QD
  7. LINZESS [Concomitant]
     Active Substance: LINACLOTIDE
     Indication: Constipation

REACTIONS (2)
  - Drug ineffective [Unknown]
  - Constipation [None]
